FAERS Safety Report 9764245 (Version 1)
Quarter: 2013Q4

REPORT INFORMATION
  Report Type: Report from Study
  Country: US (occurrence: US)
  Receive Date: 20131216
  Receipt Date: 20131216
  Transmission Date: 20140711
  Serious: Yes (Death)
  Sender: FDA-Public Use
  Company Number: PHEH2013US025774

PATIENT
  Age: 47 Year
  Sex: Male

DRUGS (1)
  1. TOBI [Suspect]
     Indication: INFECTIVE PULMONARY EXACERBATION OF CYSTIC FIBROSIS
     Dosage: 1 DF, BID
     Route: 055

REACTIONS (1)
  - Death [Fatal]
